FAERS Safety Report 22979448 (Version 4)
Quarter: 2023Q4

REPORT INFORMATION
  Report Type: Spontaneous
  Country: US (occurrence: US)
  Receive Date: 20230925
  Receipt Date: 20231009
  Transmission Date: 20240109
  Serious: Yes (Other)
  Sender: FDA-Public Use
  Company Number: US-PFIZER INC-PV202300158000

PATIENT
  Age: 63 Year
  Sex: Male

DRUGS (1)
  1. TESTOSTERONE CYPIONATE [Suspect]
     Active Substance: TESTOSTERONE CYPIONATE
     Indication: Supplementation therapy
     Dosage: UNK

REACTIONS (3)
  - Central serous chorioretinopathy [Recovered/Resolved]
  - Polycythaemia vera [Unknown]
  - Prescription drug used without a prescription [Unknown]
